FAERS Safety Report 6404876-8 (Version None)
Quarter: 2009Q4

REPORT INFORMATION
  Report Type: 
  Country: None (occurrence: None)
  Receive Date: 20091019
  Receipt Date: 20091007
  Transmission Date: 20100525
  Serious: Yes (Other)
  Sender: FDA-Public Use
  Company Number: TR-ELI_LILLY_AND_COMPANY-TR200910001662

PATIENT
  Sex: Male
  Weight: 2.7 kg

DRUGS (2)
  1. HUMULIN R [Suspect]
     Indication: GESTATIONAL DIABETES
     Dosage: 4 IU, 3/D
     Route: 064
     Dates: start: 20090101, end: 20090915
  2. HUMULIN N [Suspect]
     Indication: GESTATIONAL DIABETES
     Dosage: 6 IU, DAILY (1/D)
     Route: 064
     Dates: start: 20090601, end: 20090915

REACTIONS (3)
  - DRUG EXPOSURE DURING PREGNANCY [None]
  - LARGE FOR DATES BABY [None]
  - PREMATURE BABY [None]
